FAERS Safety Report 21758623 (Version 1)
Quarter: 2022Q4

REPORT INFORMATION
  Report Type: Spontaneous
  Country: CN (occurrence: None)
  Receive Date: 20221221
  Receipt Date: 20221221
  Transmission Date: 20230113
  Serious: Yes (Death, Hospitalization)
  Sender: FDA-Public Use
  Company Number: CN-ROCHE-3246260

PATIENT
  Sex: Male

DRUGS (2)
  1. ALECTINIB [Suspect]
     Active Substance: ALECTINIB
     Indication: Lung neoplasm malignant
     Dosage: LASTING FOR ONE MONTH
     Route: 048
  2. LORLATINIB [Suspect]
     Active Substance: LORLATINIB
     Indication: Lung neoplasm malignant
     Dosage: DF=TABLET
     Route: 048
     Dates: start: 20221116

REACTIONS (4)
  - Psychomotor hyperactivity [Fatal]
  - Restlessness [Unknown]
  - Heart rate increased [Unknown]
  - Drug ineffective [Unknown]
